FAERS Safety Report 8259159-0 (Version None)
Quarter: 2012Q2

REPORT INFORMATION
  Report Type: 
  Country: None (occurrence: None)
  Receive Date: 20120404
  Receipt Date: 20120322
  Transmission Date: 20120825
  Serious: Yes (Other)
  Sender: FDA-Public Use
  Company Number: CHPA2012US005268

PATIENT
  Age: 75 Year
  Sex: Female

DRUGS (7)
  1. VOLTAREN [Suspect]
     Dosage: UNK, ONCE
     Route: 061
     Dates: start: 20120321
  2. BYSTOLIC [Concomitant]
  3. AZOR                               /00595201/ [Concomitant]
  4. ARNICA ^BOIRON^ [Concomitant]
  5. NAPROXEN (ALEVE) [Suspect]
     Indication: ARTHRALGIA
     Dosage: 1 DF BID
     Route: 065
  6. VOLTAREN [Suspect]
     Indication: SWELLING
     Dosage: 4 GRAMS, BID
     Route: 061
     Dates: start: 20120101, end: 20120101
  7. ACETAMINOPHEN [Suspect]
     Dosage: UNK, UNK
     Route: 065

REACTIONS (5)
  - THERAPEUTIC RESPONSE UNEXPECTED [None]
  - ARTHRALGIA [None]
  - OFF LABEL USE [None]
  - ERYTHEMA [None]
  - OSTEOARTHRITIS [None]
